FAERS Safety Report 26200045 (Version 1)
Quarter: 2025Q4

REPORT INFORMATION
  Report Type: Spontaneous
  Country: US (occurrence: US)
  Receive Date: 20251225
  Receipt Date: 20251225
  Transmission Date: 20260117
  Serious: No
  Sender: RIGEL PHARMACEUTICALS
  Company Number: US-RIGEL Pharmaceuticals, INC-20250900097

PATIENT
  Sex: Female

DRUGS (1)
  1. REZLIDHIA [Suspect]
     Active Substance: OLUTASIDENIB
     Indication: Acute myelomonocytic leukaemia
     Dosage: 150 MG, BID
     Route: 048
     Dates: start: 20250828

REACTIONS (9)
  - Product dose omission issue [Unknown]
  - Pain [Unknown]
  - Toothache [Unknown]
  - Blood thyroid stimulating hormone abnormal [Unknown]
  - Dysgeusia [Unknown]
  - Gingival pain [Unknown]
  - Alopecia [Unknown]
  - Nausea [Unknown]
  - Arthralgia [Unknown]

NARRATIVE: CASE EVENT DATE: 20250101
